FAERS Safety Report 22522854 (Version 2)
Quarter: 2023Q4

REPORT INFORMATION
  Report Type: Spontaneous
  Country: RS (occurrence: RS)
  Receive Date: 20230605
  Receipt Date: 20231214
  Transmission Date: 20240110
  Serious: Yes (Other)
  Sender: FDA-Public Use
  Company Number: RS-JNJFOC-20230573057

PATIENT

DRUGS (2)
  1. IMBRUVICA [Suspect]
     Active Substance: IBRUTINIB
     Indication: Chronic lymphocytic leukaemia
     Route: 048
  2. IMBRUVICA [Suspect]
     Active Substance: IBRUTINIB
     Indication: Chronic lymphocytic leukaemia
     Route: 048

REACTIONS (7)
  - Leukopenia [Unknown]
  - Infection [Unknown]
  - Arthralgia [Unknown]
  - Haemorrhagic disorder [Unknown]
  - Atrial fibrillation [Unknown]
  - Thrombocytopenia [Unknown]
  - Neutropenia [Unknown]
